FAERS Safety Report 5812291-0 (Version None)
Quarter: 2008Q3

REPORT INFORMATION
  Report Type: 
  Country: None (occurrence: None)
  Receive Date: 20080716
  Receipt Date: 20080707
  Transmission Date: 20090109
  Serious: Yes (Hospitalization)
  Sender: FDA-Public Use
  Company Number: FR-PFIZER INC-2008056237

PATIENT
  Sex: Female

DRUGS (5)
  1. CAMPTOSAR [Suspect]
     Indication: COLON CANCER METASTATIC
     Route: 042
     Dates: start: 20080523, end: 20080523
  2. BEVACIZUMAB [Suspect]
     Indication: COLON CANCER METASTATIC
     Route: 042
     Dates: start: 20080523, end: 20080523
  3. ATROPINE SULFATE [Concomitant]
     Route: 058
     Dates: start: 20080523, end: 20080523
  4. ZOPHREN [Concomitant]
     Route: 042
     Dates: start: 20080523, end: 20080523
  5. METHYLPREDNISOLONE [Concomitant]
     Route: 042
     Dates: start: 20080523, end: 20080523

REACTIONS (4)
  - HYPERAESTHESIA [None]
  - HYPERTENSION [None]
  - HYPOXIA [None]
  - PARAESTHESIA [None]
